FAERS Safety Report 5922104-4 (Version None)
Quarter: 2008Q4

REPORT INFORMATION
  Report Type: 
  Country: None (occurrence: None)
  Receive Date: 20081017
  Receipt Date: 20081007
  Transmission Date: 20090506
  Serious: Yes (Other)
  Sender: FDA-Public Use
  Company Number: BR-BAYER-200819076LA

PATIENT
  Age: 26 Year
  Sex: Female
  Weight: 76 kg

DRUGS (1)
  1. YAZ [Suspect]
     Indication: ORAL CONTRACEPTION
     Route: 048
     Dates: end: 20081006

REACTIONS (3)
  - HYPERSENSITIVITY [None]
  - PERIORBITAL CELLULITIS [None]
  - SWELLING FACE [None]
